FAERS Safety Report 12635445 (Version 1)
Quarter: 2016Q3

REPORT INFORMATION
  Report Type: Report from Study
  Country: BR (occurrence: BR)
  Receive Date: 20160808
  Receipt Date: 20160808
  Transmission Date: 20161109
  Serious: Yes (Hospitalization, Other)
  Sender: FDA-Public Use
  Company Number: PHHY2015BR117115

PATIENT
  Age: 34 Year
  Sex: Female
  Weight: 50 kg

DRUGS (3)
  1. EXJADE [Suspect]
     Active Substance: DEFERASIROX
     Dosage: 10 MG/KG, QD (1 DF: 500 MG)
     Route: 048
     Dates: start: 201508
  2. EXJADE [Suspect]
     Active Substance: DEFERASIROX
     Indication: CONGENITAL APLASTIC ANAEMIA
     Dosage: 20 MG/KG, QD (2 DF: 1000 MG)
     Route: 048
     Dates: start: 201411
  3. EXJADE [Suspect]
     Active Substance: DEFERASIROX
     Indication: MYELODYSPLASTIC SYNDROME
     Dosage: 10 MG/KG, QD (1 DF: 500 MG)
     Route: 048
     Dates: end: 201502

REACTIONS (21)
  - Anal injury [Unknown]
  - Anorectal discomfort [Unknown]
  - Anorectal disorder [Unknown]
  - Diabetes mellitus [Unknown]
  - Malaise [Unknown]
  - Proctalgia [Unknown]
  - Dyspnoea [Unknown]
  - Irritability [Unknown]
  - Fatigue [Unknown]
  - Abdominal pain [Unknown]
  - Restlessness [Unknown]
  - Nervousness [Unknown]
  - Pain [Unknown]
  - Dry skin [Recovered/Resolved]
  - Haemorrhoids [Not Recovered/Not Resolved]
  - Influenza [Unknown]
  - Abdominal pain upper [Unknown]
  - Blood glucose decreased [Unknown]
  - Toxicity to various agents [Unknown]
  - Diarrhoea [Unknown]
  - Serum ferritin increased [Unknown]

NARRATIVE: CASE EVENT DATE: 20160801
